FAERS Safety Report 7282123-5 (Version None)
Quarter: 2011Q1

REPORT INFORMATION
  Report Type: 
  Country: None (occurrence: None)
  Receive Date: 20110208
  Receipt Date: 20110131
  Transmission Date: 20110831
  Serious: Yes (Other)
  Sender: FDA-Public Use
  Company Number: US-GILEAD-2010-0033754

PATIENT
  Sex: Female

DRUGS (9)
  1. FUROSEMIDE [Concomitant]
  2. VICODIN [Concomitant]
  3. LETAIRIS [Suspect]
     Indication: PULMONARY HYPERTENSION
     Route: 048
     Dates: start: 20101208
  4. PROAIR HFA [Concomitant]
  5. OMEPRAZOLE [Concomitant]
  6. VENLAFAXINE [Concomitant]
  7. FLONASE [Concomitant]
  8. LETAIRIS [Suspect]
     Route: 048
     Dates: start: 20091001, end: 20101117
  9. LEVOTHROID [Concomitant]

REACTIONS (6)
  - LOSS OF CONSCIOUSNESS [None]
  - LIVER FUNCTION TEST ABNORMAL [None]
  - HEAD INJURY [None]
  - VOMITING [None]
  - FALL [None]
  - PYREXIA [None]
